FAERS Safety Report 7518797-0 (Version None)
Quarter: 2011Q2

REPORT INFORMATION
  Report Type: 
  Country: None (occurrence: None)
  Receive Date: 20110602
  Receipt Date: 20110526
  Transmission Date: 20111010
  Serious: No
  Sender: FDA-Public Use
  Company Number: US-PFIZER INC-2011115192

PATIENT
  Sex: Female

DRUGS (2)
  1. BETAMETHASONE DIPROPIONATE [Suspect]
     Indication: PRURITUS
     Dosage: UNK
     Route: 061
  2. CLINDAMYCIN PHOSPHATE [Suspect]
     Indication: PRURITUS
     Dosage: UNK
     Route: 061

REACTIONS (3)
  - DRUG INEFFECTIVE [None]
  - SKIN DISORDER [None]
  - PRURITUS [None]
